FAERS Safety Report 12631701 (Version 2)
Quarter: 2016Q3

REPORT INFORMATION
  Report Type: Spontaneous
  Country: US (occurrence: US)
  Receive Date: 20160808
  Receipt Date: 20160808
  Transmission Date: 20161109
  Serious: No
  Sender: FDA-Public Use
  Company Number: US-BEH-2015055399

PATIENT
  Sex: Female
  Weight: 61 kg

DRUGS (12)
  1. HIZENTRA [Suspect]
     Active Substance: HUMAN IMMUNOGLOBULIN G
     Indication: IMMUNODEFICIENCY COMMON VARIABLE
  2. ATIVAN [Concomitant]
     Active Substance: LORAZEPAM
  3. ACETAMINOPHEN. [Concomitant]
     Active Substance: ACETAMINOPHEN
  4. ARMOUR THYROID [Concomitant]
     Active Substance: THYROID, PORCINE
  5. LMX [Concomitant]
     Active Substance: LIDOCAINE
  6. ATENOLOL. [Concomitant]
     Active Substance: ATENOLOL
  7. EPIPEN [Concomitant]
     Active Substance: EPINEPHRINE
  8. POTASSIUM CHLORIDE. [Concomitant]
     Active Substance: POTASSIUM CHLORIDE
  9. BIOTIN [Concomitant]
     Active Substance: BIOTIN
  10. PROBIOTIC [Concomitant]
     Active Substance: PROBIOTICS NOS
  11. VITAMIN D [Concomitant]
     Active Substance: CHOLECALCIFEROL
  12. MAGNESIUM [Concomitant]
     Active Substance: MAGNESIUM

REACTIONS (1)
  - Headache [Unknown]
